FAERS Safety Report 15583394 (Version 1)
Quarter: 2018Q4

REPORT INFORMATION
  Report Type: Spontaneous
  Country: JP (occurrence: JP)
  Receive Date: 20181103
  Receipt Date: 20181103
  Transmission Date: 20190205
  Serious: Yes (Other)
  Sender: FDA-Public Use
  Company Number: JP-TEVA-2017-JP-003032J

PATIENT
  Sex: Male

DRUGS (4)
  1. CERCINE [Suspect]
     Active Substance: DIAZEPAM
     Route: 048
  2. CERCINE [Suspect]
     Active Substance: DIAZEPAM
     Indication: TINNITUS
     Route: 048
  3. DEPAS [Concomitant]
     Active Substance: ETIZOLAM
     Route: 048
     Dates: start: 201610
  4. DEPAS [Concomitant]
     Active Substance: ETIZOLAM
     Route: 048

REACTIONS (6)
  - Cerebral infarction [Unknown]
  - Nightmare [Unknown]
  - Intentional product use issue [Unknown]
  - Speech disorder [Unknown]
  - Product use in unapproved indication [Unknown]
  - Drug effect incomplete [Unknown]
